FAERS Safety Report 6432948-0 (Version None)
Quarter: 2009Q4

REPORT INFORMATION
  Report Type: 
  Country: None (occurrence: None)
  Receive Date: 20091109
  Receipt Date: 20091103
  Transmission Date: 20100525
  Serious: Yes (Other)
  Sender: FDA-Public Use
  Company Number: DE-BRISTOL-MYERS SQUIBB COMPANY-14827950

PATIENT
  Age: 64 Year
  Sex: Female
  Weight: 71 kg

DRUGS (5)
  1. LITALIR CAPS [Suspect]
     Indication: THROMBOCYTOSIS
     Dosage: CAPS
     Route: 048
     Dates: start: 20081201
  2. MARCUMAR [Concomitant]
     Indication: ACTIVATED PROTEIN C RESISTANCE
     Dosage: 1DF- HALF A TAB
     Route: 048
     Dates: start: 20060101
  3. ATACAND HCT [Concomitant]
     Indication: HYPERTENSION
     Dosage: 1DF- 1 TAB
     Route: 048
     Dates: start: 20070101
  4. CARMEN [Concomitant]
     Indication: HYPERTENSION
     Dosage: TABLETS
     Route: 048
     Dates: start: 20080201
  5. PAROXETINE [Concomitant]
     Indication: DEPRESSION
     Dosage: TABLETS
     Route: 048
     Dates: start: 20080201

REACTIONS (1)
  - CORNEAL OPACITY [None]
